FAERS Safety Report 16320308 (Version 12)
Quarter: 2020Q3

REPORT INFORMATION
  Report Type: Spontaneous
  Country: US (occurrence: US)
  Receive Date: 20190516
  Receipt Date: 20200806
  Transmission Date: 20201102
  Serious: Yes (Other)
  Sender: FDA-Public Use
  Company Number: US-PFIZER INC-2019198381

PATIENT
  Age: 58 Year
  Sex: Male

DRUGS (3)
  1. LYRICA [Suspect]
     Active Substance: PREGABALIN
     Indication: NEURITIS
     Dosage: 150 MG, 2X/DAY
     Route: 048
     Dates: start: 20190513
  2. LYRICA [Suspect]
     Active Substance: PREGABALIN
     Indication: NEURALGIA
     Dosage: 200 MG
  3. LYRICA [Suspect]
     Active Substance: PREGABALIN
     Indication: DIABETIC NEUROPATHY
     Dosage: 75 MG, 2X/DAY

REACTIONS (11)
  - Pain in extremity [Not Recovered/Not Resolved]
  - Stress [Unknown]
  - Drug ineffective [Unknown]
  - Cardiac disorder [Unknown]
  - Headache [Unknown]
  - Palpitations [Unknown]
  - Pain [Unknown]
  - Heart rate increased [Unknown]
  - Feeling of despair [Unknown]
  - Drug dependence [Unknown]
  - Blood pressure increased [Unknown]
